FAERS Safety Report 15809557 (Version 1)
Quarter: 2019Q1

REPORT INFORMATION
  Report Type: Spontaneous
  Country: GB (occurrence: GB)
  Receive Date: 20190111
  Receipt Date: 20190111
  Transmission Date: 20190417
  Serious: Yes (Hospitalization)
  Sender: FDA-Public Use
  Company Number: GB-ABBVIE-19S-167-2618276-00

PATIENT

DRUGS (1)
  1. DUODOPA [Suspect]
     Active Substance: CARBIDOPA\LEVODOPA
     Indication: PARKINSON^S DISEASE
     Dosage: 24 HR DUODOPA
     Route: 050

REACTIONS (12)
  - Loss of personal independence in daily activities [Unknown]
  - Lower respiratory tract infection [Unknown]
  - Restless legs syndrome [Recovered/Resolved]
  - Therapeutic response shortened [Recovered/Resolved]
  - Muscle spasms [Recovered/Resolved]
  - Paranoia [Unknown]
  - Parkinson^s disease [Unknown]
  - Pain [Recovered/Resolved]
  - Confusional state [Recovered/Resolved]
  - Delirium [Unknown]
  - Confusional state [Unknown]
  - Hallucination [Unknown]
